FAERS Safety Report 6361354-2 (Version None)
Quarter: 2009Q3

REPORT INFORMATION
  Report Type: 
  Country: None (occurrence: None)
  Receive Date: 20090918
  Receipt Date: 20090914
  Transmission Date: 20100115
  Serious: Yes (Hospitalization)
  Sender: FDA-Public Use
  Company Number: B0592850A

PATIENT
  Sex: Male

DRUGS (8)
  1. ELTROMBOPAG [Suspect]
     Indication: IDIOPATHIC THROMBOCYTOPENIC PURPURA
     Dosage: 50MG PER DAY
     Dates: start: 20090818
  2. PREDNISONE [Suspect]
  3. LIPITOR [Concomitant]
  4. CADEX [Concomitant]
  5. PRILOSEC [Concomitant]
  6. AMLODIPINE [Concomitant]
  7. BISOPROLOL FUMARATE [Concomitant]
  8. SPIRONOLACTONE [Concomitant]

REACTIONS (1)
  - CHEST PAIN [None]
